FAERS Safety Report 4688430-4 (Version None)
Quarter: 2005Q2

REPORT INFORMATION
  Report Type: 
  Country: None (occurrence: None)
  Receive Date: 20050609
  Receipt Date: 20050527
  Transmission Date: 20051028
  Serious: Yes (Hospitalization, Other)
  Sender: FDA-Public Use
  Company Number: 2005082096

PATIENT
  Age: 57 Year
  Sex: Male

DRUGS (3)
  1. SILDENAFIL CITRATE [Suspect]
     Indication: ERECTILE DYSFUNCTION
     Dosage: (50 MG, AS NECESSARY), ORAL
     Route: 048
     Dates: start: 20040501, end: 20040511
  2. GEN0GLYBE (GLIBENCLAMIDE) [Concomitant]
  3. HYZAAR [Concomitant]

REACTIONS (1)
  - CORONARY ARTERY OCCLUSION [None]
